FAERS Safety Report 18924974 (Version 4)
Quarter: 2024Q2

REPORT INFORMATION
  Report Type: Spontaneous
  Country: US (occurrence: US)
  Receive Date: 20210222
  Receipt Date: 20240613
  Transmission Date: 20240716
  Serious: No
  Sender: FDA-Public Use
  Company Number: US-PFIZER INC-2021148251

PATIENT
  Age: 67 Year
  Sex: Female

DRUGS (13)
  1. XELJANZ [Suspect]
     Active Substance: TOFACITINIB CITRATE
     Dosage: 10 MG, DAILY (XELJANZ 5MG 2 TABLETS DAILY)
  2. FOSAMAX [Concomitant]
     Active Substance: ALENDRONATE SODIUM
  3. PANTOPRAZOLE [Concomitant]
     Active Substance: PANTOPRAZOLE
  4. METOPROLOL [Concomitant]
     Active Substance: METOPROLOL
  5. MELATONIN [Concomitant]
     Active Substance: MELATONIN
  6. FERROUS SULFATE [Concomitant]
     Active Substance: FERROUS SULFATE
  7. EFFEXOR [Concomitant]
     Active Substance: VENLAFAXINE HYDROCHLORIDE
  8. VITAMIN D2 [Concomitant]
     Active Substance: ERGOCALCIFEROL
  9. XANAX [Concomitant]
     Active Substance: ALPRAZOLAM
  10. POTASSIUM [Concomitant]
     Active Substance: POTASSIUM
  11. GABAPENTIN [Concomitant]
     Active Substance: GABAPENTIN
  12. TRAMADOL [Concomitant]
     Active Substance: TRAMADOL\TRAMADOL HYDROCHLORIDE
  13. CALCIUM/VITAMIN D NOS [Concomitant]

REACTIONS (4)
  - Memory impairment [Unknown]
  - Pain [Unknown]
  - Arthritis [Unknown]
  - Joint swelling [Unknown]
